FAERS Safety Report 14620702 (Version 2)
Quarter: 2018Q2

REPORT INFORMATION
  Report Type: Spontaneous
  Country: GB (occurrence: GB)
  Receive Date: 20180309
  Receipt Date: 20180403
  Transmission Date: 20180711
  Serious: Yes (Hospitalization, Congenital Anomaly)
  Sender: FDA-Public Use
  Company Number: GB-SA-2018SA052935

PATIENT
  Age: 50 Year
  Sex: Female

DRUGS (1)
  1. LEFLUNOMIDE. [Suspect]
     Active Substance: LEFLUNOMIDE
     Indication: ARTHRITIS
     Route: 048
     Dates: start: 20170710, end: 20171010

REACTIONS (6)
  - Atrial fibrillation [Unknown]
  - Syncope [Not Recovered/Not Resolved]
  - Muscle spasms [Unknown]
  - Altered state of consciousness [Unknown]
  - Head discomfort [Unknown]
  - Eye movement disorder [Unknown]

NARRATIVE: CASE EVENT DATE: 20170901
